FAERS Safety Report 7791540-6 (Version None)
Quarter: 2011Q3

REPORT INFORMATION
  Report Type: 
  Country: None (occurrence: None)
  Receive Date: 20110930
  Receipt Date: 20110930
  Transmission Date: 20111222
  Serious: Yes (Other)
  Sender: FDA-Public Use
  Company Number: None

PATIENT
  Sex: Female
  Weight: 59.8748 kg

DRUGS (2)
  1. RECLAST [Suspect]
     Indication: OSTEOPENIA
     Dosage: 5MG 100ML YEARLY
     Dates: start: 20110916
  2. RECLAST [Suspect]
     Indication: OSTEOPENIA
     Dosage: 5MG 100ML YEARLY
     Dates: start: 20100316

REACTIONS (12)
  - EYE PAIN [None]
  - ARTHRALGIA [None]
  - WEIGHT DECREASED [None]
  - NASAL DRYNESS [None]
  - RASH [None]
  - OEDEMA MOUTH [None]
  - DRY MOUTH [None]
  - TOOTH DISORDER [None]
  - PAIN IN JAW [None]
  - FATIGUE [None]
  - BALANCE DISORDER [None]
  - MOOD SWINGS [None]
